FAERS Safety Report 6582858-3 (Version None)
Quarter: 2010Q1

REPORT INFORMATION
  Report Type: 
  Country: None (occurrence: None)
  Receive Date: 20100216
  Receipt Date: 20100203
  Transmission Date: 20100710
  Serious: Yes (Hospitalization, Other)
  Sender: FDA-Public Use
  Company Number: JP-PFIZER INC-2009288740

PATIENT
  Age: 49 Year
  Sex: Female
  Weight: 62 kg

DRUGS (7)
  1. SUNITINIB MALATE [Suspect]
     Indication: RENAL CELL CARCINOMA
     Dosage: 50 MG, 1X/DAY
     Route: 048
     Dates: start: 20090831
  2. TEMOCAPRIL HYDROCHLORIDE [Concomitant]
     Dosage: UNK
     Route: 048
  3. OMEPRAL [Concomitant]
     Dosage: UNK
     Route: 048
  4. LASIX [Concomitant]
     Dosage: 20 MG, 1X/DAY
     Route: 048
  5. RINDERON [Concomitant]
     Dosage: 2.5 MG, 2X/DAY
     Route: 048
  6. AMLODIPINE [Concomitant]
     Route: 048
  7. PASTARON [Concomitant]
     Dosage: UNK
     Route: 062

REACTIONS (3)
  - HYPOTHYROIDISM [None]
  - VASCULAR PURPURA [None]
  - WHITE BLOOD CELL COUNT DECREASED [None]
